FAERS Safety Report 4850464-4 (Version None)
Quarter: 2005Q4

REPORT INFORMATION
  Report Type: 
  Country: None (occurrence: None)
  Receive Date: 20051207
  Receipt Date: 20051207
  Transmission Date: 20060501
  Serious: Yes (Other)
  Sender: FDA-Public Use
  Company Number: None

PATIENT
  Age: 86 Year
  Sex: Male
  Weight: 80.4 kg

DRUGS (6)
  1. DURICEF [Suspect]
     Indication: CELLULITIS
     Dosage: 500MG
  2. DILTIAZEM HCL [Concomitant]
  3. HYDOXYZINE [Concomitant]
  4. OMEPRAZOLE [Concomitant]
  5. WARFARIN SODIUM [Concomitant]
  6. FUROSEMIDE [Concomitant]

REACTIONS (2)
  - OEDEMA PERIPHERAL [None]
  - RASH PRURITIC [None]
